FAERS Safety Report 8742239 (Version 2)
Quarter: 2012Q4

REPORT INFORMATION
  Report Type: 
  Country: IE (occurrence: IE)
  Receive Date: 20120824
  Receipt Date: 20120920
  Transmission Date: 20130627
  Serious: Yes (Other)
  Sender: FDA-Public Use
  Company Number: PHFR2012IE004635

PATIENT
  Age: 56 Year
  Sex: Male

DRUGS (8)
  1. CLOZARIL [Suspect]
     Indication: SCHIZOPHRENIA
     Dosage: UNK UKN, UNK
     Route: 048
     Dates: start: 20111010
  2. CLOZARIL [Suspect]
     Dosage: 600 mg, UNK
     Route: 048
     Dates: start: 20120903
  3. CLOZAPINE [Suspect]
     Dosage: 550 mg, UNK
     Route: 048
     Dates: end: 20120903
  4. EPILIM CHRONO [Concomitant]
     Dosage: 800 mg, UNK
     Route: 048
     Dates: start: 20120619
  5. NEXIUM [Concomitant]
     Dosage: 40 mg, UNK
     Dates: start: 20110414
  6. BISOPROLOL [Concomitant]
     Dosage: 5 mg, UNK
     Route: 048
     Dates: start: 20111024
  7. KWELLS [Concomitant]
     Dosage: UNK UKN, UNK
     Dates: start: 20111121
  8. MOVICOL [Concomitant]
     Dosage: UNK UKN, UNK
     Dates: start: 20120106

REACTIONS (5)
  - White blood cells urine positive [Recovered/Resolved]
  - White blood cell count increased [Unknown]
  - Fatigue [Recovered/Resolved]
  - Dehydration [Unknown]
  - Urinary tract infection [Recovered/Resolved]
